FAERS Safety Report 6300654-9 (Version None)
Quarter: 2009Q3

REPORT INFORMATION
  Report Type: 
  Country: None (occurrence: None)
  Receive Date: 20090803
  Receipt Date: 20090722
  Transmission Date: 20100115
  Serious: Yes (Hospitalization)
  Sender: FDA-Public Use
  Company Number: 2009005526

PATIENT
  Age: 60 Year
  Sex: Male

DRUGS (1)
  1. TRISENOX [Suspect]
     Indication: ACUTE PROMYELOCYTIC LEUKAEMIA
     Dosage: 9.4 MG (9.4 MG, 1 IN 1 D); INTRAVENOUS DRIP
     Route: 041
     Dates: start: 20090420, end: 20090507

REACTIONS (6)
  - BIOPSY BONE MARROW ABNORMAL [None]
  - DRUG TOXICITY [None]
  - NEUTROPHIL COUNT DECREASED [None]
  - PLATELET COUNT DECREASED [None]
  - RASH [None]
  - WHITE BLOOD CELL COUNT DECREASED [None]
